FAERS Safety Report 7234283-X (Version None)
Quarter: 2011Q1

REPORT INFORMATION
  Report Type: 
  Country: None (occurrence: None)
  Receive Date: 20110119
  Receipt Date: 20110106
  Transmission Date: 20110831
  Serious: Yes (Other)
  Sender: FDA-Public Use
  Company Number: US-ROCHE-731197

PATIENT
  Sex: Female
  Weight: 70.8 kg

DRUGS (2)
  1. ACCUTANE [Suspect]
     Route: 065
     Dates: start: 19901002, end: 19910101
  2. ACCUTANE [Suspect]
     Indication: ACNE
     Route: 065
     Dates: start: 19850101, end: 19860101

REACTIONS (7)
  - COLITIS ULCERATIVE [None]
  - BRONCHITIS [None]
  - CROHN'S DISEASE [None]
  - GASTROINTESTINAL INJURY [None]
  - CERVICOBRACHIAL SYNDROME [None]
  - DEPRESSION [None]
  - BIPOLAR DISORDER [None]
